FAERS Safety Report 25057812 (Version 1)
Quarter: 2025Q1

REPORT INFORMATION
  Report Type: Spontaneous
  Country: ES (occurrence: ES)
  Receive Date: 20250310
  Receipt Date: 20250310
  Transmission Date: 20250408
  Serious: Yes (Other)
  Sender: GLENMARK
  Company Number: ES-MLMSERVICE-20250224-PI428037-00202-1

PATIENT
  Age: 7 Decade
  Sex: Male

DRUGS (1)
  1. LINEZOLID [Suspect]
     Active Substance: LINEZOLID
     Indication: Nocardiosis
     Route: 065

REACTIONS (3)
  - Drug level increased [Recovering/Resolving]
  - Toxicity to various agents [Unknown]
  - Thrombocytopenia [Recovering/Resolving]
